FAERS Safety Report 9435021 (Version 2)
Quarter: 2013Q3

REPORT INFORMATION
  Report Type: Report from Study
  Country: AR (occurrence: AR)
  Receive Date: 20130801
  Receipt Date: 20130919
  Transmission Date: 20140515
  Serious: Yes (Hospitalization)
  Sender: FDA-Public Use
  Company Number: PHHY2013AR081761

PATIENT
  Sex: Female

DRUGS (1)
  1. DIOVAN [Suspect]
     Indication: HYPERTENSION
     Dosage: 1 DF, (160 MG) DAILY
     Route: 048
     Dates: end: 201305

REACTIONS (4)
  - Cerebrovascular accident [Recovering/Resolving]
  - Loss of consciousness [Recovering/Resolving]
  - Hemiplegia [Recovering/Resolving]
  - Hypertension [Recovering/Resolving]
